FAERS Safety Report 25591644 (Version 1)
Quarter: 2025Q3

REPORT INFORMATION
  Report Type: Spontaneous
  Country: US (occurrence: US)
  Receive Date: 20250722
  Receipt Date: 20250722
  Transmission Date: 20251020
  Serious: No
  Sender: Karo Pharma
  Company Number: US-Karo Pharma-2180964

PATIENT
  Age: 52 Year

DRUGS (1)
  1. TERBINAFINE [Suspect]
     Active Substance: TERBINAFINE
     Indication: Product used for unknown indication

REACTIONS (2)
  - Nail psoriasis [Unknown]
  - Arthritis [Unknown]
